FAERS Safety Report 10908484 (Version 4)
Quarter: 2015Q2

REPORT INFORMATION
  Report Type: Spontaneous
  Country: FI (occurrence: FI)
  Receive Date: 20150312
  Receipt Date: 20150601
  Transmission Date: 20150821
  Serious: Yes (Hospitalization)
  Sender: FDA-Public Use
  Company Number: FI-NAPPMUNDI-GBR-2015-0026278

PATIENT
  Age: 21 Year
  Sex: Female

DRUGS (1)
  1. NORSPAN 5 MCG/HR DEPOTLAASTARI [Suspect]
     Active Substance: BUPRENORPHINE
     Indication: BRACHIAL PLEXOPATHY
     Dosage: UNK
     Route: 062
     Dates: start: 20150116, end: 20150117

REACTIONS (15)
  - Loss of consciousness [Unknown]
  - Muscle spasms [Unknown]
  - Eye pain [Unknown]
  - Dysarthria [Unknown]
  - Nausea [Unknown]
  - Anxiety [Unknown]
  - Hallucination [Unknown]
  - Psychotic disorder [Unknown]
  - Pain [Unknown]
  - Fluid imbalance [Unknown]
  - Confusional state [Unknown]
  - Visual impairment [Unknown]
  - Body temperature increased [Unknown]
  - Malaise [Unknown]
  - Miosis [Unknown]

NARRATIVE: CASE EVENT DATE: 201501
